FAERS Safety Report 16700981 (Version 2)
Quarter: 2019Q3

REPORT INFORMATION
  Report Type: Spontaneous
  Country: JP (occurrence: JP)
  Receive Date: 20190814
  Receipt Date: 20190823
  Transmission Date: 20191004
  Serious: Yes (Other)
  Sender: FDA-Public Use
  Company Number: JP-GLAXOSMITHKLINE-JP2019JPN144825

PATIENT
  Age: 32 Year
  Sex: Female

DRUGS (2)
  1. MYONAL [EPERISONE HYDROCHLORIDE] [Suspect]
     Active Substance: EPERISONE HYDROCHLORIDE
     Dosage: UNK
     Route: 048
     Dates: start: 20190808, end: 201908
  2. IMIGRAN [Suspect]
     Active Substance: SUMATRIPTAN SUCCINATE
     Indication: MIGRAINE
     Dosage: 50 MG, UNK
     Route: 048
     Dates: start: 20190808

REACTIONS (3)
  - Choking [Recovered/Resolved]
  - Flushing [Recovered/Resolved]
  - Dyspnoea [Recovered/Resolved]

NARRATIVE: CASE EVENT DATE: 20190808
